FAERS Safety Report 6719823-9 (Version None)
Quarter: 2010Q2

REPORT INFORMATION
  Report Type: 
  Country: None (occurrence: None)
  Receive Date: 20100511
  Receipt Date: 20100429
  Transmission Date: 20101027
  Serious: Yes (Other)
  Sender: FDA-Public Use
  Company Number: PHHY2010AU27460

PATIENT
  Sex: Male

DRUGS (1)
  1. TASIGNA [Suspect]
     Indication: CHRONIC MYELOID LEUKAEMIA
     Dosage: 800 MG
     Route: 048
     Dates: start: 20100329

REACTIONS (5)
  - DIPLOPIA [None]
  - EYE PAIN [None]
  - MUSCLE SPASMS [None]
  - PAIN OF SKIN [None]
  - TEMPORAL ARTERITIS [None]
